FAERS Safety Report 7042970-1 (Version None)
Quarter: 2010Q4

REPORT INFORMATION
  Report Type: 
  Country: None (occurrence: None)
  Receive Date: 20101013
  Receipt Date: 20100924
  Transmission Date: 20110411
  Serious: Yes (Death, Hospitalization, Other)
  Sender: FDA-Public Use
  Company Number: PHEH2007US03275

PATIENT
  Sex: Male
  Weight: 80.5 kg

DRUGS (62)
  1. ZOMETA [Suspect]
     Indication: MULTIPLE MYELOMA
     Dosage: 4 MG, UNK
     Dates: start: 20041129, end: 20061001
  2. AREDIA [Suspect]
     Indication: MULTIPLE MYELOMA
     Dosage: 90 MG, UNK
  3. THALIDOMIDE [Concomitant]
     Indication: MULTIPLE MYELOMA
     Dosage: 100 MG, QD
     Dates: start: 20060601, end: 20060919
  4. THALIDOMIDE [Concomitant]
     Dosage: 200 MG, QD
     Dates: start: 20060920
  5. PREDNISONE [Concomitant]
  6. CHEMOTHERAPEUTICS NOS [Concomitant]
  7. RADIATION THERAPY [Concomitant]
  8. PROCRIT                            /00909301/ [Concomitant]
  9. OXYGEN [Concomitant]
  10. MS CONTIN [Concomitant]
     Indication: PAIN
     Dosage: 100 MG, UNK
  11. OXYCONTIN [Concomitant]
     Indication: PAIN
  12. KADIAN ^KNOLL^ [Concomitant]
     Dosage: UNK
     Dates: start: 20040101
  13. METHADONE [Concomitant]
  14. LIDOCAINE [Concomitant]
  15. NEUROTON [Concomitant]
     Dosage: 400 MG, UNK
  16. ZANAFLEX [Concomitant]
     Dosage: 4 MG, UNK
  17. NAPROSYN [Concomitant]
  18. ZOLOFT [Concomitant]
     Dosage: 50 MG, UNK
  19. AMBIEN [Concomitant]
     Dosage: 10 MG, UNK
  20. LYRICA [Concomitant]
  21. PHYSICAL THERAPY [Concomitant]
  22. ZITHROMAX [Concomitant]
  23. KEFLEX [Concomitant]
  24. METFORMIN [Concomitant]
     Dosage: 50 MG, UNK
  25. FLOMAX [Concomitant]
     Dosage: 0.4 UNK, UNK
  26. ATENOLOL [Concomitant]
     Dosage: 100 MG, UNK
  27. NORVASC [Concomitant]
     Dosage: 5 MG, UNK
  28. PLAVIX [Concomitant]
     Dosage: 75 MG, UNK
  29. ASPIRIN [Concomitant]
  30. ALLEGRA [Concomitant]
     Dosage: 180 MG, UNK
  31. ALBUTEROL [Concomitant]
  32. NEXIUM [Concomitant]
     Dosage: 40 MG, UNK
  33. CLONAZEPAM [Concomitant]
  34. SERTRALINE HYDROCHLORIDE [Concomitant]
  35. SYNACORT [Concomitant]
  36. NITROFURAN [Concomitant]
  37. SODIUM BICARBONATE [Concomitant]
     Dosage: UNK
  38. SPIRIVA [Concomitant]
  39. ADVAIR DISKUS 100/50 [Concomitant]
     Dosage: UNK
  40. ARANESP [Concomitant]
     Dosage: UNK
  41. VELCADE [Concomitant]
     Dosage: UNK
     Dates: start: 20060501
  42. CHANTIX [Concomitant]
  43. NITROGLYCERIN ^A.L.^ [Suspect]
  44. GENTEAL                            /03186201/ [Concomitant]
  45. MULTIVITAMIN AND MINERAL SUPP [Concomitant]
     Dosage: UNK, 3 PILLS A DAY TAKEN WITH BREAKFAST
  46. NEURONTIN [Concomitant]
     Dosage: 600MG, 2 TIME A DAY
  47. FUROSEMIDE [Concomitant]
     Dosage: 20 MG, ONE TIME A DAY
  48. FENTANYL [Concomitant]
     Dosage: UNK
  49. ESTER-C [Concomitant]
     Dosage: UNK
  50. MEGESTROL [Concomitant]
     Dosage: 40MG, 2 TEAS DAILY WHEN NEEDED
  51. LEVOSALBUTAMOL [Concomitant]
     Dosage: 2 INHALATION FOUR TIMES A DAY
     Route: 048
     Dates: start: 20061102
  52. MOMETASONE FUROATE [Concomitant]
     Dosage: 2 INHALATION FOUR TIMES A DAY
     Route: 048
     Dates: start: 20061102
  53. IPRATROPIUM BROMIDE [Concomitant]
     Dosage: 2 INHALATION FOUR TIMES A DAY
     Route: 048
     Dates: start: 20061102, end: 20061121
  54. IPRATROPIUM BROMIDE [Concomitant]
     Dosage: 2 INHALATION FOUR TIMES A DAY
     Route: 048
     Dates: start: 20070619
  55. FLUOXETINE [Concomitant]
     Dosage: 2 CAPSULES DAILY
     Route: 048
     Dates: start: 20061102, end: 20071121
  56. FLUVAX [Concomitant]
     Dosage: UNK
     Dates: start: 20061001
  57. PNEUMOVAX 23 [Concomitant]
     Dosage: UNK
     Dates: start: 20061001
  58. VALERIAN [Concomitant]
  59. SENOKOT                                 /UNK/ [Concomitant]
  60. ASPIRIN [Concomitant]
  61. IBUPROFEN [Concomitant]
  62. IRON [Concomitant]

REACTIONS (79)
  - ABNORMAL SENSATION IN EYE [None]
  - ANAEMIA OF CHRONIC DISEASE [None]
  - ANXIETY [None]
  - AORTIC ANEURYSM [None]
  - ASTHENIA [None]
  - ASTIGMATISM [None]
  - BACK PAIN [None]
  - BLADDER CANCER [None]
  - BLEPHARITIS [None]
  - BLOOD CALCIUM DECREASED [None]
  - BLOOD IMMUNOGLOBULIN G INCREASED [None]
  - BONE DEBRIDEMENT [None]
  - BONE DISORDER [None]
  - BOWEN'S DISEASE [None]
  - BRONCHITIS [None]
  - CEREBROVASCULAR ACCIDENT [None]
  - CHILLS [None]
  - CHRONIC OBSTRUCTIVE PULMONARY DISEASE [None]
  - CIRCULATORY COLLAPSE [None]
  - CONFUSIONAL STATE [None]
  - CONVULSION [None]
  - DEATH [None]
  - DECREASED INTEREST [None]
  - DECUBITUS ULCER [None]
  - DEHYDRATION [None]
  - DIVERTICULUM [None]
  - DRUG ABUSE [None]
  - DYSPEPSIA [None]
  - DYSPHAGIA [None]
  - DYSPNOEA [None]
  - EYE NAEVUS [None]
  - FEELING ABNORMAL [None]
  - FOOT DEFORMITY [None]
  - FULGURATION [None]
  - GASTRIC ULCER [None]
  - GENERAL PHYSICAL HEALTH DETERIORATION [None]
  - GLAUCOMA [None]
  - HAEMATURIA [None]
  - HALLUCINATION [None]
  - HYPERCALCAEMIA OF MALIGNANCY [None]
  - HYPERMETROPIA [None]
  - HYPOTENSION [None]
  - IMPAIRED HEALING [None]
  - INTERVERTEBRAL DISC DEGENERATION [None]
  - INTRAOCULAR LENS IMPLANT [None]
  - LOCALISED INFECTION [None]
  - MULTIPLE MYELOMA [None]
  - MUSCULOSKELETAL PAIN [None]
  - MYELOMA RECURRENCE [None]
  - MYOCARDIAL INFARCTION [None]
  - MYOCLONUS [None]
  - OPTIC NERVE CUPPING [None]
  - ORTHOPEDIC PROCEDURE [None]
  - OSTEOARTHRITIS [None]
  - OSTEOMYELITIS [None]
  - OSTEONECROSIS OF JAW [None]
  - PAIN [None]
  - PANCYTOPENIA [None]
  - PARAPLEGIA [None]
  - PERONEAL NERVE PALSY [None]
  - PLASMACYTOSIS [None]
  - PROTEIN URINE PRESENT [None]
  - PYREXIA [None]
  - RENAL FAILURE CHRONIC [None]
  - RESPIRATORY DISTRESS [None]
  - ROTATOR CUFF REPAIR [None]
  - SCAR [None]
  - SEPSIS [None]
  - SKIN LESION [None]
  - SLEEP DISORDER DUE TO A GENERAL MEDICAL CONDITION [None]
  - SPINAL FUSION SURGERY [None]
  - SQUAMOUS CELL CARCINOMA OF SKIN [None]
  - TOE AMPUTATION [None]
  - TOOTH EXTRACTION [None]
  - TREATMENT NONCOMPLIANCE [None]
  - URINARY TRACT INFECTION [None]
  - VESICAL FISTULA [None]
  - VIRAL INFECTION [None]
  - VISION BLURRED [None]
